FAERS Safety Report 9356952 (Version 2)
Quarter: 2013Q3

REPORT INFORMATION
  Report Type: Spontaneous
  Country: US (occurrence: US)
  Receive Date: 20130620
  Receipt Date: 20130726
  Transmission Date: 20140515
  Serious: No
  Sender: FDA-Public Use
  Company Number: US-009507513-1305USA017042

PATIENT
  Age: 50 Year
  Sex: Male

DRUGS (7)
  1. COZAAR [Suspect]
     Indication: BLOOD PRESSURE
     Dosage: 25 MG, QD
     Route: 048
     Dates: start: 20130415, end: 20130416
  2. COZAAR [Suspect]
     Dosage: UNK
     Route: 048
     Dates: start: 2013
  3. COZAAR [Concomitant]
     Route: 048
  4. ASPIRIN [Concomitant]
     Dosage: 81 MG, QD
  5. SPIRONOLACTONE [Concomitant]
     Dosage: 25 MG, QD
  6. HYDROCHLOROTHIAZIDE [Concomitant]
     Dosage: UNK
  7. GEMFIBROZIL [Concomitant]

REACTIONS (1)
  - Herpes zoster [Recovered/Resolved]
